FAERS Safety Report 5526268-6 (Version None)
Quarter: 2007Q4

REPORT INFORMATION
  Report Type: 
  Country: None (occurrence: None)
  Receive Date: 20071121
  Receipt Date: 20071121
  Transmission Date: 20080405
  Serious: Yes (Hospitalization)
  Sender: FDA-Public Use
  Company Number: None

PATIENT
  Age: 76 Year
  Sex: Male
  Weight: 92.0802 kg

DRUGS (4)
  1. DIVALPROEX SODIUM [Suspect]
     Indication: BIPOLAR I DISORDER
     Dosage: 3000MG  EVERY DAY PO
     Route: 048
     Dates: start: 19970101, end: 20071018
  2. LISINOPRIL AND HYDROCHLOROTHIAZIDE [Concomitant]
  3. METOPROLOL [Concomitant]
  4. PRIMIDONE [Concomitant]

REACTIONS (5)
  - ABNORMAL BEHAVIOUR [None]
  - HYPERAMMONAEMIA [None]
  - LETHARGY [None]
  - MENTAL STATUS CHANGES [None]
  - SPEECH DISORDER [None]
